FAERS Safety Report 7560441-0 (Version None)
Quarter: 2011Q2

REPORT INFORMATION
  Report Type: 
  Country: None (occurrence: None)
  Receive Date: 20110525
  Receipt Date: 20110215
  Transmission Date: 20111010
  Serious: No
  Sender: FDA-Public Use
  Company Number: 324983

PATIENT
  Sex: Female

DRUGS (2)
  1. GLIMEPIRIDE [Suspect]
     Indication: PRODUCT USED FOR UNKNOWN INDICATION
  2. VICTOZA [Suspect]
     Indication: PRODUCT USED FOR UNKNOWN INDICATION
     Dosage: SUBCUTANEOUS
     Route: 058

REACTIONS (2)
  - FEELING COLD [None]
  - DEVICE MALFUNCTION [None]
